FAERS Safety Report 25167491 (Version 1)
Quarter: 2025Q2

REPORT INFORMATION
  Report Type: Spontaneous
  Country: US (occurrence: None)
  Receive Date: 20250405
  Receipt Date: 20250405
  Transmission Date: 20250717
  Serious: Yes (Hospitalization)
  Sender: FDA-CTU
  Company Number: None

PATIENT
  Age: 69 Year
  Sex: Female
  Weight: 98 kg

DRUGS (7)
  1. CYCLOPHOSPHAMIDE [Suspect]
     Active Substance: CYCLOPHOSPHAMIDE
  2. SPRYCEL [Suspect]
     Active Substance: DASATINIB
  3. DEXAMETHASONE [Suspect]
     Active Substance: DEXAMETHASONE
  4. DOXORUBICIN HYDROCHLORIDE [Suspect]
     Active Substance: DOXORUBICIN HYDROCHLORIDE
  5. MESNA [Suspect]
     Active Substance: MESNA
  6. METHOTREXATE [Suspect]
     Active Substance: METHOTREXATE
  7. VINCRISTINE SULFATE [Suspect]
     Active Substance: VINCRISTINE SULFATE

REACTIONS (2)
  - Supraventricular tachycardia [None]
  - Blood magnesium decreased [None]

NARRATIVE: CASE EVENT DATE: 20250402
